FAERS Safety Report 19688363 (Version 2)
Quarter: 2021Q3

REPORT INFORMATION
  Report Type: Spontaneous
  Country: US (occurrence: US)
  Receive Date: 20210811
  Receipt Date: 20210913
  Transmission Date: 20211014
  Serious: No
  Sender: FDA-Public Use
  Company Number: US-INCYTE CORPORATION-2021IN006895

PATIENT

DRUGS (1)
  1. JAKAFI [Suspect]
     Active Substance: RUXOLITINIB
     Indication: MYELODYSPLASTIC SYNDROME
     Dosage: 20 MILLIGRAM, BID
     Route: 048

REACTIONS (4)
  - Off label use [Unknown]
  - Fatigue [Not Recovered/Not Resolved]
  - Product dose omission issue [Unknown]
  - Diarrhoea [Not Recovered/Not Resolved]
